FAERS Safety Report 12230446 (Version 1)
Quarter: 2016Q2

REPORT INFORMATION
  Report Type: Spontaneous
  Country: JO (occurrence: JO)
  Receive Date: 20160401
  Receipt Date: 20160401
  Transmission Date: 20160815
  Serious: Yes (Other)
  Sender: FDA-Public Use
  Company Number: JO-HOSPIRA-3233528

PATIENT
  Age: 5 Year
  Sex: Male

DRUGS (8)
  1. CISPLATIN. [Suspect]
     Active Substance: CISPLATIN
     Indication: MEDULLOBLASTOMA
     Dosage: DAY 1 EVERY SIX WEEKS
  2. CISPLATIN. [Suspect]
     Active Substance: CISPLATIN
     Indication: GLIOBLASTOMA MULTIFORME
     Dosage: DAY 1 EVERY SIX WEEKS
  3. VINCRISTINE SULFATE. [Suspect]
     Active Substance: VINCRISTINE SULFATE
     Indication: MEDULLOBLASTOMA
     Dosage: DAYS 1, 8,14 EVERY 6 WEEKS
  4. TEMOZOLOMIDE. [Suspect]
     Active Substance: TEMOZOLOMIDE
     Indication: MEDULLOBLASTOMA
     Dosage: EIGHT CYCLES OF 5 DAYS (200 MG/M2/DAY)
  5. VINCRISTINE SULFATE. [Suspect]
     Active Substance: VINCRISTINE SULFATE
     Indication: GLIOBLASTOMA MULTIFORME
     Dosage: DAYS 1, 8,14 EVERY 6 WEEKS
  6. LOMUSTINE. [Suspect]
     Active Substance: LOMUSTINE
     Indication: MEDULLOBLASTOMA
     Dosage: DAY 1 EVERY SIX WEEKS
  7. LOMUSTINE. [Suspect]
     Active Substance: LOMUSTINE
     Indication: GLIOBLASTOMA MULTIFORME
     Dosage: DAY 1 EVERY SIX WEEKS
  8. TEMOZOLOMIDE. [Suspect]
     Active Substance: TEMOZOLOMIDE
     Indication: GLIOBLASTOMA MULTIFORME
     Dosage: EIGHT CYCLES OF 5 DAYS (200 MG/M2/DAY)

REACTIONS (3)
  - Febrile neutropenia [Unknown]
  - Deafness neurosensory [Unknown]
  - Renal tubular disorder [Unknown]
